FAERS Safety Report 5304212-4 (Version None)
Quarter: 2007Q2

REPORT INFORMATION
  Report Type: 
  Country: None (occurrence: None)
  Receive Date: 20070423
  Receipt Date: 20070412
  Transmission Date: 20071010
  Serious: Yes (Other)
  Sender: FDA-Public Use
  Company Number: US-JNJFOC-20070402673

PATIENT
  Sex: Female

DRUGS (6)
  1. TOPAMAX [Suspect]
     Route: 048
  2. TOPAMAX [Suspect]
     Indication: MIGRAINE PROPHYLAXIS
     Route: 048
  3. NEXIUM [Concomitant]
     Indication: HIATUS HERNIA
  4. PROTONIX [Concomitant]
     Indication: HIATUS HERNIA
  5. WELLBUTRIN [Concomitant]
     Indication: DEPRESSION
  6. TENOLOL [Concomitant]
     Indication: MITRAL VALVE PROLAPSE

REACTIONS (3)
  - CHEST PAIN [None]
  - HEART RATE IRREGULAR [None]
  - OESOPHAGEAL PAIN [None]
